FAERS Safety Report 7010321-4 (Version None)
Quarter: 2010Q3

REPORT INFORMATION
  Report Type: 
  Country: None (occurrence: None)
  Receive Date: 20100923
  Receipt Date: 20100916
  Transmission Date: 20110219
  Serious: Yes (Hospitalization)
  Sender: FDA-Public Use
  Company Number: B0674795A

PATIENT
  Sex: Female

DRUGS (2)
  1. ARIXTRA [Suspect]
     Dosage: 7.5MG PER DAY
     Route: 058
     Dates: start: 20100622, end: 20100630
  2. LOXEN [Concomitant]
     Indication: HYPERTENSION
     Route: 042

REACTIONS (9)
  - APHASIA [None]
  - CEREBRAL HAEMATOMA [None]
  - DISORIENTATION [None]
  - DYSARTHRIA [None]
  - HEMIPLEGIA [None]
  - HEMISENSORY NEGLECT [None]
  - OFF LABEL USE [None]
  - SOMNOLENCE [None]
  - VIITH NERVE PARALYSIS [None]
